FAERS Safety Report 8113737-8 (Version None)
Quarter: 2012Q1

REPORT INFORMATION
  Report Type: 
  Country: None (occurrence: None)
  Receive Date: 20120203
  Receipt Date: 20120125
  Transmission Date: 20120608
  Serious: Yes (Hospitalization)
  Sender: FDA-Public Use
  Company Number: US-JNJFOC-20111202337

PATIENT
  Sex: Male
  Weight: 62.14 kg

DRUGS (17)
  1. NEURONTIN [Concomitant]
  2. MESALAMINE [Concomitant]
  3. MAGNESIUM CITRATE [Concomitant]
  4. ONDANSETRON HCL [Concomitant]
  5. BENADRYL [Concomitant]
  6. REMICADE [Suspect]
     Indication: INFLAMMATORY BOWEL DISEASE
     Route: 042
     Dates: start: 20050807, end: 20100507
  7. PULMICORT-100 [Concomitant]
  8. ATENOLOL [Concomitant]
  9. PROVIGIL [Concomitant]
  10. TPN [Concomitant]
  11. MIRALAX [Concomitant]
  12. XOPENEX [Concomitant]
  13. NEXIUM [Concomitant]
  14. ACETAMINOPHEN [Concomitant]
  15. NALTREXONE [Concomitant]
  16. IMMUNE GLOBULIN NOS [Concomitant]
     Route: 042
     Dates: start: 20080808
  17. CALCIUM CARBONATE [Concomitant]

REACTIONS (1)
  - GASTROENTERITIS [None]
